FAERS Safety Report 5048069-8 (Version None)
Quarter: 2006Q3

REPORT INFORMATION
  Report Type: 
  Country: None (occurrence: None)
  Receive Date: 20060711
  Receipt Date: 20030825
  Transmission Date: 20061208
  Serious: Yes (Hospitalization, Disabling)
  Sender: FDA-Public Use
  Company Number: US-ROCHE-345207

PATIENT
  Age: 24 Year
  Sex: Male
  Weight: 73.5 kg

DRUGS (1)
  1. ACCUTANE [Suspect]
     Indication: ACNE
     Route: 048
     Dates: start: 19950622, end: 19951019

REACTIONS (40)
  - ANAL FISSURE [None]
  - ANGER [None]
  - ARTHRALGIA [None]
  - ASCITES [None]
  - BLOOD CHOLESTEROL INCREASED [None]
  - CAT SCRATCH DISEASE [None]
  - CELLULITIS [None]
  - CHAPPED LIPS [None]
  - CHOLELITHIASIS [None]
  - COLITIS [None]
  - COLITIS ULCERATIVE [None]
  - CONSTIPATION [None]
  - CONVULSION [None]
  - DECREASED APPETITE [None]
  - ENCEPHALOPATHY [None]
  - FLATULENCE [None]
  - FUNGAL INFECTION [None]
  - GASTRITIS [None]
  - GASTROENTERITIS [None]
  - GASTROINTESTINAL HAEMORRHAGE [None]
  - GRANULOMA [None]
  - HAND FRACTURE [None]
  - HIATUS HERNIA [None]
  - HYPOGLYCAEMIA [None]
  - ILEUS PARALYTIC [None]
  - INFLAMMATORY BOWEL DISEASE [None]
  - LEGIONELLA INFECTION [None]
  - LYMPHADENITIS BACTERIAL [None]
  - LYMPHADENOPATHY [None]
  - NIGHT SWEATS [None]
  - OCULAR HYPERAEMIA [None]
  - OEDEMA PERIPHERAL [None]
  - PNEUMONIA [None]
  - POST PROCEDURAL COMPLICATION [None]
  - POUCHITIS [None]
  - PYREXIA [None]
  - RECTAL TENESMUS [None]
  - SEROMA [None]
  - SUBCUTANEOUS ABSCESS [None]
  - WHITE BLOOD CELL COUNT INCREASED [None]
